FAERS Safety Report 13525701 (Version 18)
Quarter: 2019Q3

REPORT INFORMATION
  Report Type: Report from Study
  Country: None (occurrence: JP)
  Receive Date: 20170509
  Receipt Date: 20190917
  Transmission Date: 20191004
  Serious: Yes (Hospitalization)
  Sender: FDA-Public Use
  Company Number: JP-ABBVIE-17K-087-1967641-00

PATIENT
  Age: 72 Year
  Sex: Female
  Weight: 47 kg

DRUGS (8)
  1. DUODOPA [Suspect]
     Active Substance: CARBIDOPA\LEVODOPA
     Indication: PARKINSON^S DISEASE
     Dosage: 5 ML, CD: 2.0 ML/HR FOR 12 HR, ED: 1.0 ML/UNIT FOR 1
     Route: 050
     Dates: start: 20170202, end: 20170502
  2. ZONISAMIDE. [Concomitant]
     Active Substance: ZONISAMIDE
     Indication: PRODUCT USED FOR UNKNOWN INDICATION
     Route: 048
  3. MAGNESIUM OXIDE. [Concomitant]
     Active Substance: MAGNESIUM OXIDE
     Indication: PRODUCT USED FOR UNKNOWN INDICATION
     Route: 048
  4. PRAMIPEXOLE HYDROCHLORIDE HYDRATE [Concomitant]
     Active Substance: PRAMIPEXOLE DIHYDROCHLORIDE
     Indication: PARKINSON^S DISEASE
     Route: 048
     Dates: start: 201004
  5. PREGABALIN. [Concomitant]
     Active Substance: PREGABALIN
     Indication: PRODUCT USED FOR UNKNOWN INDICATION
     Route: 048
  6. CLOPIDOGREL SULFATE [Concomitant]
     Active Substance: CLOPIDOGREL BISULFATE
     Indication: PRODUCT USED FOR UNKNOWN INDICATION
     Route: 048
  7. CARBIDOPA-HYDRATE-LEVODOPA MIX [Concomitant]
     Indication: PARKINSON^S DISEASE
     Route: 048
  8. ENTACAPONE. [Concomitant]
     Active Substance: ENTACAPONE
     Indication: PRODUCT USED FOR UNKNOWN INDICATION
     Route: 048

REACTIONS (6)
  - Intestinal obstruction [Recovered/Resolved]
  - Intussusception [Recovered/Resolved]
  - Peritonitis [Recovered/Resolved]
  - Bezoar [Recovered/Resolved]
  - Device dislocation [Recovered/Resolved]
  - Gastrointestinal ulcer [Recovered/Resolved]

NARRATIVE: CASE EVENT DATE: 20170423
